FAERS Safety Report 16724561 (Version 1)
Quarter: 2019Q3

REPORT INFORMATION
  Report Type: Spontaneous
  Country: FR (occurrence: FR)
  Receive Date: 20190821
  Receipt Date: 20190821
  Transmission Date: 20191005
  Serious: Yes (Life-Threatening)
  Sender: FDA-Public Use
  Company Number: FR-PFIZER INC-2019358169

PATIENT
  Sex: Male
  Weight: 68 kg

DRUGS (2)
  1. MIVACURIUM [Suspect]
     Active Substance: MIVACURIUM
     Indication: SKIN TEST
     Dates: start: 20190620
  2. ATRACURIUM BESILATE [Suspect]
     Active Substance: ATRACURIUM BESYLATE
     Indication: SKIN TEST
     Dates: start: 20190620

REACTIONS (2)
  - Cardiac arrest [Recovered/Resolved]
  - Skin test positive [Recovered/Resolved]

NARRATIVE: CASE EVENT DATE: 20190620
